FAERS Safety Report 9963879 (Version 1)
Quarter: 2014Q1

REPORT INFORMATION
  Report Type: Report from Study
  Country: US (occurrence: US)
  Receive Date: 20140305
  Receipt Date: 20140305
  Transmission Date: 20141002
  Serious: No
  Sender: FDA-Public Use
  Company Number: US-ABBVIE-13P-163-1117524-00

PATIENT
  Sex: Female

DRUGS (5)
  1. HUMIRA [Suspect]
     Indication: ANKYLOSING SPONDYLITIS
     Dates: start: 20130531
  2. NEURONTIN [Concomitant]
     Indication: PAIN
     Route: 048
  3. TRINESSA [Concomitant]
     Indication: CONTRACEPTION
     Dosage: DAILY
     Route: 048
  4. TYLENOL [Concomitant]
     Indication: PAIN
     Route: 048
  5. IBUPROFEN [Concomitant]
     Indication: PAIN
     Route: 048

REACTIONS (2)
  - Pain [Not Recovered/Not Resolved]
  - Pyrexia [Not Recovered/Not Resolved]
